FAERS Safety Report 13668349 (Version 1)
Quarter: 2017Q2

REPORT INFORMATION
  Report Type: Spontaneous
  Country: US (occurrence: US)
  Receive Date: 20170619
  Receipt Date: 20170619
  Transmission Date: 20170830
  Serious: Yes (Other)
  Sender: FDA-Public Use
  Company Number: None

PATIENT
  Age: 56 Year
  Sex: Female
  Weight: 74.25 kg

DRUGS (2)
  1. WP THYROID [Concomitant]
     Active Substance: THYROID, PORCINE
  2. ATIVAN [Suspect]
     Active Substance: LORAZEPAM
     Indication: ANXIETY
     Dosage: ?          QUANTITY:3 TABLET(S);?
     Route: 048
     Dates: start: 20141215, end: 20170423

REACTIONS (12)
  - Back pain [None]
  - Emotional disorder [None]
  - Anxiety [None]
  - Depression [None]
  - Amnesia [None]
  - Withdrawal syndrome [None]
  - Fatigue [None]
  - Temperature regulation disorder [None]
  - Bone pain [None]
  - Mental disorder [None]
  - Insomnia [None]
  - Hallucination, auditory [None]

NARRATIVE: CASE EVENT DATE: 20150301
